FAERS Safety Report 20722780 (Version 1)
Quarter: 2022Q2

REPORT INFORMATION
  Report Type: Other
  Country: None (occurrence: IN)
  Receive Date: 20220419
  Receipt Date: 20220419
  Transmission Date: 20220721
  Serious: Yes (Congenital Anomaly)
  Sender: FDA-Public Use
  Company Number: IN-OrBion Pharmaceuticals Private Limited-2127890

PATIENT
  Sex: Male
  Weight: 3.5 kg

DRUGS (1)
  1. OLANZAPINE [Suspect]
     Active Substance: OLANZAPINE
     Indication: Schizophrenia
     Route: 065

REACTIONS (4)
  - Exposure during pregnancy [Unknown]
  - Talipes [Unknown]
  - Sedation [Unknown]
  - Maternal exposure during breast feeding [Unknown]
